FAERS Safety Report 22074200 (Version 1)
Quarter: 2023Q1

REPORT INFORMATION
  Report Type: Report from Study
  Country: DE (occurrence: None)
  Receive Date: 20230308
  Receipt Date: 20230308
  Transmission Date: 20230418
  Serious: Yes (Hospitalization)
  Sender: FDA-Public Use
  Company Number: DE-ROCHE-2950307

PATIENT
  Age: 91 Year
  Sex: Female
  Weight: 53 kg

DRUGS (7)
  1. ATEZOLIZUMAB [Suspect]
     Active Substance: ATEZOLIZUMAB
     Indication: Cervix carcinoma recurrent
     Dosage: DATE OF LAST ADMINISTRATION: 04/NOV/2021, 11/JUN/2021
     Route: 042
     Dates: start: 20201119
  2. BEVACIZUMAB [Suspect]
     Active Substance: BEVACIZUMAB
     Indication: Cervix carcinoma recurrent
     Dosage: ON 23/SEP/2021, DATE OF LAST ADMINISTRATION OF BEVACIZUMAB.
     Route: 042
     Dates: start: 20201119
  3. PACLITAXEL [Suspect]
     Active Substance: PACLITAXEL
     Indication: Cervix carcinoma recurrent
     Dosage: ON 04/MAY/2021, START DATE OF LAST DOSE ADMINISTRATION OF PACLITAXEL.
     Route: 042
     Dates: start: 20201119
  4. CISPLATIN [Suspect]
     Active Substance: CISPLATIN
     Indication: Cervix carcinoma recurrent
     Dosage: DOSE: 14 CS, DATE OF LAST DOSE ADMINISTRATION: 24/MAY/2021
     Route: 042
     Dates: start: 20201119
  5. CARBOPLATIN [Suspect]
     Active Substance: CARBOPLATIN
     Indication: Cervix carcinoma recurrent
     Dosage: ON 04/MAY/2021, DATE OF LAST DOSE ADMINISTRATION OF CARBOPLATIN.
     Route: 042
     Dates: start: 20201119
  6. PANTOPRAZOLE SODIUM [Concomitant]
     Active Substance: PANTOPRAZOLE SODIUM
     Route: 048
     Dates: start: 20210713
  7. LEVOTHYROXINE [Concomitant]
     Active Substance: LEVOTHYROXINE
     Indication: Hypothyroidism
     Route: 048
     Dates: start: 20210713

REACTIONS (1)
  - Stomatitis [Recovered/Resolved]

NARRATIVE: CASE EVENT DATE: 20211020
